FAERS Safety Report 12179660 (Version 2)
Quarter: 2016Q1

REPORT INFORMATION
  Report Type: Spontaneous
  Country: TR (occurrence: TR)
  Receive Date: 20160315
  Receipt Date: 20160324
  Transmission Date: 20160526
  Serious: Yes (Other)
  Sender: FDA-Public Use
  Company Number: TR-WATSON-2016-05656

PATIENT
  Age: 49 Year
  Sex: Female

DRUGS (4)
  1. AMLODIPINE MESILATE [Concomitant]
     Active Substance: AMLODIPINE MESYLATE
     Indication: PRODUCT USED FOR UNKNOWN INDICATION
     Dosage: 5 MG, BID
     Route: 065
  2. MYCOPHENOLATE MOFETIL (UNKNOWN) [Suspect]
     Active Substance: MYCOPHENOLATE MOFETIL
     Indication: IMMUNOSUPPRESSION
     Dosage: 1500 MG, BID
     Route: 065
  3. PREDNISOLONE (UNKNOWN) [Suspect]
     Active Substance: PREDNISOLONE
     Indication: IMMUNOSUPPRESSION
     Dosage: 60 MG, DAILY
     Route: 065
  4. CYCLOSPORINE (UNKNOWN) [Suspect]
     Active Substance: CYCLOSPORINE
     Indication: IMMUNOSUPPRESSION
     Dosage: 150 MG, BID
     Route: 065

REACTIONS (1)
  - Squamous cell carcinoma of the cervix [Recovered/Resolved]
